FAERS Safety Report 8839104 (Version 5)
Quarter: 2013Q1

REPORT INFORMATION
  Report Type: Spontaneous
  Country: US (occurrence: US)
  Receive Date: 20121015
  Receipt Date: 20130304
  Transmission Date: 20140127
  Serious: No
  Sender: FDA-Public Use
  Company Number: US-BIOGENIDEC-2012BI043302

PATIENT
  Age: 50 None
  Sex: Female

DRUGS (1)
  1. TYSABRI [Suspect]
     Indication: MULTIPLE SCLEROSIS
     Route: 042
     Dates: start: 20120924

REACTIONS (8)
  - Diarrhoea [Recovered/Resolved with Sequelae]
  - Decreased appetite [Not Recovered/Not Resolved]
  - Dehydration [Unknown]
  - Memory impairment [Not Recovered/Not Resolved]
  - Anxiety [Unknown]
  - Headache [Not Recovered/Not Resolved]
  - Fatigue [Not Recovered/Not Resolved]
  - Gait disturbance [Not Recovered/Not Resolved]
